FAERS Safety Report 7479829-1 (Version None)
Quarter: 2011Q2

REPORT INFORMATION
  Report Type: 
  Country: None (occurrence: None)
  Receive Date: 20110513
  Receipt Date: 20110509
  Transmission Date: 20111010
  Serious: Yes (Death)
  Sender: FDA-Public Use
  Company Number: US-CELGENEUS-163-21880-11051062

PATIENT
  Sex: Female

DRUGS (15)
  1. LEVOTHYROXINE SODIUM [Concomitant]
     Dosage: 25 MICROGRAM
     Route: 048
  2. LORAZEPAM [Concomitant]
     Dosage: 1 MILLIGRAM
     Route: 048
  3. OMEPRAZOLE [Concomitant]
     Dosage: 20 MILLIGRAM
     Route: 048
  4. VITAMIN D [Concomitant]
     Route: 048
  5. REVLIMID [Suspect]
     Indication: MULTIPLE MYELOMA
     Dosage: 10 MILLIGRAM
     Route: 048
     Dates: start: 20100801
  6. FOLIC ACID [Concomitant]
     Dosage: 1 MILLIGRAM
     Route: 048
  7. NIFEDIPINE [Concomitant]
     Dosage: 90 MILLIGRAM
     Route: 048
  8. OXYCODONE HCL [Concomitant]
     Dosage: 10 MILLIGRAM
     Route: 048
  9. OXYCONTIN [Concomitant]
     Dosage: 10 MILLIGRAM
     Route: 048
  10. TMP/SMZ DS [Concomitant]
     Dosage: 160-800
     Route: 048
  11. NORTRIPTYLINE HYDROCHLORIDE [Concomitant]
     Dosage: 25 MILLIGRAM
     Route: 048
  12. PAROXETINE HCL [Concomitant]
     Dosage: 40 MILLIGRAM
     Route: 048
  13. PRAMIPEXOLE DIHYDROCHLORIDE [Concomitant]
     Dosage: .25 MILLIGRAM
     Route: 048
  14. VALTREX [Concomitant]
     Dosage: 1 GRAM
     Route: 048
  15. VITAMIN B-12 [Concomitant]
     Dosage: 500 MICROGRAM
     Route: 048

REACTIONS (1)
  - DEATH [None]
